FAERS Safety Report 4746971-5 (Version None)
Quarter: 2005Q3

REPORT INFORMATION
  Report Type: 
  Country: None (occurrence: None)
  Receive Date: 20050815
  Receipt Date: 20050729
  Transmission Date: 20060218
  Serious: Yes (Hospitalization)
  Sender: FDA-Public Use
  Company Number: 2005BI009607

PATIENT
  Age: 54 Year
  Sex: Male

DRUGS (20)
  1. AVONEX [Suspect]
     Indication: MULTIPLE SCLEROSIS
     Dosage: 30 UG;QW; IM
     Route: 030
     Dates: start: 20020802
  2. AVONEX [Suspect]
     Indication: MULTIPLE SCLEROSIS
     Dosage: 30 UG;QW; IM
     Route: 030
  3. ASPIRIN [Concomitant]
  4. PRILOSEC [Concomitant]
  5. ETODOLAC [Concomitant]
  6. MONOPRIL [Concomitant]
  7. LIDOCAINE [Concomitant]
  8. PLAVIX [Concomitant]
  9. LOPRESSOR [Concomitant]
  10. ERULOSE [Concomitant]
  11. ZOCOR [Concomitant]
  12. GABITRIL [Concomitant]
  13. ZOROFLEX [Concomitant]
  14. NEUROSTATIN [Concomitant]
  15. LANTUS [Concomitant]
  16. LASIX [Concomitant]
  17. POTASSIUM CHLORIDE [Concomitant]
  18. ALBUTEROL [Concomitant]
  19. MULTIVITAMIN [Concomitant]
  20. MORPHINE SULFATE [Concomitant]

REACTIONS (11)
  - ARTERIAL INSUFFICIENCY [None]
  - CHRONIC OBSTRUCTIVE PULMONARY DISEASE [None]
  - ILEUS [None]
  - LUNG DISORDER [None]
  - NEUROPATHY PERIPHERAL [None]
  - PNEUMONIA [None]
  - SINUSITIS [None]
  - SMOKER [None]
  - SPINAL OSTEOARTHRITIS [None]
  - UPPER RESPIRATORY TRACT INFECTION [None]
  - VIRAL INFECTION [None]
